FAERS Safety Report 16614881 (Version 3)
Quarter: 2019Q3

REPORT INFORMATION
  Report Type: Report from Study
  Country: None (occurrence: US)
  Receive Date: 20190723
  Receipt Date: 20190912
  Transmission Date: 20191004
  Serious: Yes (Other)
  Sender: FDA-Public Use
  Company Number: US-ABBVIE-19K-163-2861718-00

PATIENT
  Sex: Female

DRUGS (2)
  1. HUMIRA [Suspect]
     Active Substance: ADALIMUMAB
     Route: 058
     Dates: start: 2019
  2. HUMIRA [Suspect]
     Active Substance: ADALIMUMAB
     Indication: RHEUMATOID ARTHRITIS
     Route: 058
     Dates: start: 201905, end: 2019

REACTIONS (5)
  - Sinusitis [Unknown]
  - Foot deformity [Recovered/Resolved]
  - Secretion discharge [Unknown]
  - Postoperative wound infection [Unknown]
  - Sinus operation [Unknown]

NARRATIVE: CASE EVENT DATE: 2019
